FAERS Safety Report 21886881 (Version 2)
Quarter: 2023Q1

REPORT INFORMATION
  Report Type: Report from Study
  Country: US (occurrence: US)
  Receive Date: 20230119
  Receipt Date: 20230217
  Transmission Date: 20230417
  Serious: Yes (Other)
  Sender: FDA-Public Use
  Company Number: US-BAYER-2023A003152

PATIENT
  Age: 51 Year
  Sex: Female

DRUGS (5)
  1. STIVARGA [Suspect]
     Active Substance: REGORAFENIB
     Indication: Colorectal cancer
     Dosage: 80 MG, QD DAILY FOR 21 DAYS ON AND 7 DAYS OFF
     Route: 048
     Dates: start: 20230106
  2. STIVARGA [Suspect]
     Active Substance: REGORAFENIB
     Indication: Colorectal cancer
     Dosage: 40 MG, QD
  3. STIVARGA [Suspect]
     Active Substance: REGORAFENIB
     Indication: Colorectal cancer
     Dosage: 80 MG, QDFOR 21 DAYS ON AND 7 DAYS OFF
     Route: 048
     Dates: start: 20230206
  4. MIRALAX [Concomitant]
     Active Substance: POLYETHYLENE GLYCOL 3350
     Indication: Constipation
  5. MORPHINE [Concomitant]
     Active Substance: MORPHINE
     Indication: Abdominal pain

REACTIONS (14)
  - Rectal haemorrhage [None]
  - Neuropathy peripheral [None]
  - Constipation [Unknown]
  - Nausea [Unknown]
  - Lethargy [Unknown]
  - Fatigue [Unknown]
  - Abdominal pain [Unknown]
  - Off label use [None]
  - Vertigo [None]
  - Heart rate irregular [None]
  - Dry skin [None]
  - Peripheral coldness [None]
  - Pain [None]
  - Decreased appetite [None]

NARRATIVE: CASE EVENT DATE: 20220107
